FAERS Safety Report 13284844 (Version 1)
Quarter: 2017Q1

REPORT INFORMATION
  Report Type: Spontaneous
  Country: FR (occurrence: FR)
  Receive Date: 20170301
  Receipt Date: 20170301
  Transmission Date: 20170428
  Serious: Yes (Hospitalization)
  Sender: FDA-Public Use
  Company Number: FR-SA-2017SA033691

PATIENT
  Age: 93 Year
  Sex: Female

DRUGS (10)
  1. AMIODARONE [Suspect]
     Active Substance: AMIODARONE
     Indication: ATRIAL FIBRILLATION
     Route: 048
     Dates: end: 20170120
  2. INNOHEP [Suspect]
     Active Substance: TINZAPARIN SODIUM
     Indication: ANTICOAGULANT THERAPY
     Dosage: INNOHEP 14 000 IU ANTI-XA/0.7 ML, SOLUTION FOR INJECTION (S.C.) IN PRE-FILLED SYRINGE
     Route: 058
     Dates: start: 20170109, end: 20170118
  3. LOXEN LP [Concomitant]
     Active Substance: NICARDIPINE
     Dosage: LOXEN L P 50 MG, PROLONGED -RELEASE CAPSULE
     Route: 065
  4. LASILIX [Concomitant]
     Active Substance: FUROSEMIDE
     Dosage: COMPRIME SECABLE?RANK
     Route: 065
  5. AMAREL [Suspect]
     Active Substance: GLIMEPIRIDE
     Indication: TYPE 2 DIABETES MELLITUS
     Route: 048
     Dates: end: 20170121
  6. PREVISCAN [Suspect]
     Active Substance: FLUINDIONE
     Indication: ATRIAL FIBRILLATION
     Route: 048
     Dates: end: 20170109
  7. CARDENSIEL [Concomitant]
     Active Substance: BISOPROLOL FUMARATE
     Dosage: CARDENSIEL 5 MG, FILM COATED DIVISIBLE TABLET
     Route: 065
  8. RILMENIDINE [Concomitant]
     Active Substance: RILMENIDINE
     Route: 065
  9. FOZITEC [Suspect]
     Active Substance: FOSINOPRIL
     Indication: HYPERTENSION
     Route: 048
     Dates: end: 20170118
  10. LEVOTHYROX [Concomitant]
     Active Substance: LEVOTHYROXINE
     Dosage: LEVOTHYROX 50 MICROGRAMMES, COMPRIME SECABLE
     Route: 065

REACTIONS (2)
  - Subdural haematoma [Recovering/Resolving]
  - Facial paralysis [Recovering/Resolving]

NARRATIVE: CASE EVENT DATE: 20170117
